FAERS Safety Report 6550444-7 (Version None)
Quarter: 2010Q1

REPORT INFORMATION
  Report Type: 
  Country: None (occurrence: None)
  Receive Date: 20100125
  Receipt Date: 20100113
  Transmission Date: 20100710
  Serious: Yes (Other)
  Sender: FDA-Public Use
  Company Number: IT-BRISTOL-MYERS SQUIBB COMPANY-14910178

PATIENT
  Age: 56 Year
  Sex: Female

DRUGS (7)
  1. BLINDED: BRIVANIB ALANINATE [Suspect]
     Indication: COLORECTAL CANCER METASTATIC
     Dosage: INTERRUPTED ON 03DEC09;
     Route: 048
     Dates: start: 20091203
  2. ERBITUX [Suspect]
     Indication: COLORECTAL CANCER METASTATIC
     Dosage: INTERRUPT ON 17DEC09
     Route: 042
     Dates: start: 20091210
  3. IRINOTECAN HCL [Suspect]
     Indication: COLORECTAL CANCER METASTATIC
     Dosage: INTERUPT ON 10DEC09
     Route: 042
     Dates: start: 20091210
  4. BLINDED: PLACEBO [Suspect]
     Indication: COLORECTAL CANCER METASTATIC
     Dosage: INTERUPT ON 03DEC09
     Route: 048
     Dates: start: 20091203
  5. POTASSIUM CHLORIDE [Concomitant]
     Dosage: RETARD
     Dates: start: 20091221
  6. ROCEPHIN [Concomitant]
     Dates: start: 20091218
  7. SALINE [Concomitant]
     Dates: start: 20091221

REACTIONS (2)
  - ASTHENIA [None]
  - HYPOKALAEMIA [None]
